FAERS Safety Report 5045591-5 (Version None)
Quarter: 2006Q3

REPORT INFORMATION
  Report Type: 
  Country: None (occurrence: None)
  Receive Date: 20060707
  Receipt Date: 20060609
  Transmission Date: 20061208
  Serious: Yes (Hospitalization)
  Sender: FDA-Public Use
  Company Number: US-ROCHE-451854

PATIENT
  Age: 49 Year
  Sex: Male

DRUGS (4)
  1. PEGASYS [Suspect]
     Dosage: DOSAGE ROUTE REPORTED AS INJECTABLE
     Route: 050
     Dates: start: 20060615, end: 20060615
  2. RIBAVIRIN [Suspect]
     Route: 048
     Dates: start: 20060615, end: 20060615
  3. LITHIUM CARBONATE [Concomitant]
     Indication: BIPOLAR DISORDER
  4. UNSPECIFIED DRUG [Concomitant]
     Dosage: THE PATIENT STATED HE TOOK 11 OTHER DRUGS CONCOMITANTLY.

REACTIONS (8)
  - ANXIETY [None]
  - FALL [None]
  - GAIT DISTURBANCE [None]
  - LOSS OF CONSCIOUSNESS [None]
  - MEMORY IMPAIRMENT [None]
  - PYREXIA [None]
  - THYROID DISORDER [None]
  - VISION BLURRED [None]
